FAERS Safety Report 6016552-4 (Version None)
Quarter: 2008Q4

REPORT INFORMATION
  Report Type: 
  Country: None (occurrence: None)
  Receive Date: 20081222
  Receipt Date: 20081218
  Transmission Date: 20090506
  Serious: Yes (Other)
  Sender: FDA-Public Use
  Company Number: FR-ASTRAZENECA-2008CG01885

PATIENT
  Age: 84 Year
  Sex: Female

DRUGS (7)
  1. PULMICORT-100 [Suspect]
     Indication: CHRONIC OBSTRUCTIVE PULMONARY DISEASE
     Route: 055
     Dates: start: 20070901, end: 20081112
  2. PULMICORT-100 [Suspect]
     Route: 055
     Dates: start: 20081101, end: 20081209
  3. PULMICORT-100 [Suspect]
     Route: 055
     Dates: start: 20081201, end: 20081216
  4. HYZAAR [Concomitant]
     Indication: HYPERTENSION
  5. ATROVENT [Concomitant]
     Indication: CHRONIC OBSTRUCTIVE PULMONARY DISEASE
     Route: 055
     Dates: start: 20070901
  6. PLAVIX [Concomitant]
     Indication: TRANSIENT ISCHAEMIC ATTACK
     Dates: start: 20000101
  7. LEVOTHYROX [Concomitant]
     Indication: HYPOTHYROIDISM

REACTIONS (2)
  - DYSPHONIA [None]
  - HAEMOPTYSIS [None]
